FAERS Safety Report 8531482-1 (Version None)
Quarter: 2012Q3

REPORT INFORMATION
  Report Type: 
  Country: None (occurrence: None)
  Receive Date: 20120723
  Receipt Date: 20120720
  Transmission Date: 20120928
  Serious: Yes (Other)
  Sender: FDA-Public Use
  Company Number: US-FRI-1000031509

PATIENT
  Age: 79 Year
  Sex: Male

DRUGS (12)
  1. ASPIRIN [Concomitant]
  2. VITAMIN B6 [Concomitant]
  3. LANTUS [Concomitant]
     Indication: TYPE 2 DIABETES MELLITUS
  4. GLIMEPIRIDE [Concomitant]
     Indication: TYPE 2 DIABETES MELLITUS
  5. BYSTOLIC [Suspect]
     Indication: HEART RATE INCREASED
  6. SIMVASTATIN [Concomitant]
     Dosage: 40 MG
  7. HYDRALAZINE HCL [Concomitant]
     Dosage: 25 MG BID
  8. VITAMIN B-12 [Concomitant]
  9. CARBIDOPA AND LEVODOPA [Concomitant]
     Indication: PARKINSON'S DISEASE
     Dosage: 25 MG/100MG TID
  10. FOLIC ACID [Concomitant]
  11. BYSTOLIC [Suspect]
     Indication: HYPERTENSION
     Dosage: 5 MG
     Route: 048
     Dates: end: 20120501
  12. FUROSEMIDE [Concomitant]
     Dosage: 40 MG

REACTIONS (2)
  - WEIGHT INCREASED [None]
  - HYPOGLYCAEMIA [None]
